FAERS Safety Report 5357321-8 (Version None)
Quarter: 2007Q2

REPORT INFORMATION
  Report Type: 
  Country: None (occurrence: None)
  Receive Date: 20070614
  Receipt Date: 20070604
  Transmission Date: 20071010
  Serious: No
  Sender: FDA-Public Use
  Company Number: US-JNJFOC-20070601229

PATIENT
  Sex: Female

DRUGS (3)
  1. INVEGA [Suspect]
     Indication: ANXIETY
     Route: 048
  2. ZOLOFT [Concomitant]
     Indication: DEPRESSION
  3. LUNESTA [Concomitant]
     Indication: SLEEP DISORDER

REACTIONS (1)
  - DRUG SCREEN POSITIVE [None]
